FAERS Safety Report 25606380 (Version 1)
Quarter: 2025Q3

REPORT INFORMATION
  Report Type: Report from Study
  Country: IN (occurrence: IN)
  Receive Date: 20250725
  Receipt Date: 20250725
  Transmission Date: 20251021
  Serious: Yes (Other)
  Sender: ROCHE
  Company Number: IN-002147023-NVSC2025IN115779

PATIENT
  Sex: Female

DRUGS (1)
  1. RANIBIZUMAB [Suspect]
     Active Substance: RANIBIZUMAB
     Indication: Choroidal neovascularisation
     Route: 050
     Dates: start: 20250328

REACTIONS (7)
  - Retinal degeneration [Unknown]
  - Retinal oedema [Unknown]
  - Detachment of retinal pigment epithelium [Unknown]
  - Retinal drusen [Unknown]
  - Vitreous adhesions [Unknown]
  - Tessellated fundus [Unknown]
  - Retinal scar [Unknown]
